FAERS Safety Report 9197526 (Version 4)
Quarter: 2013Q3

REPORT INFORMATION
  Report Type: Spontaneous
  Country: JP (occurrence: JP)
  Receive Date: 20130328
  Receipt Date: 20130715
  Transmission Date: 20140515
  Serious: Yes (Hospitalization)
  Sender: FDA-Public Use
  Company Number: JP-GLAXOSMITHKLINE-B0871647A

PATIENT
  Age: 57 Year
  Sex: Female

DRUGS (7)
  1. LAMICTAL [Suspect]
     Indication: SCHIZOAFFECTIVE DISORDER
     Dosage: 25MG ALTERNATE DAYS
     Route: 048
     Dates: start: 201211
  2. LAMICTAL [Suspect]
     Indication: SCHIZOAFFECTIVE DISORDER
     Dosage: 100MG TWICE PER DAY
     Route: 048
     Dates: start: 20130123, end: 20130222
  3. LIMAS [Concomitant]
     Route: 048
  4. ROHYPNOL [Concomitant]
     Route: 065
  5. LENDORMIN [Concomitant]
     Route: 048
  6. AMOBAN [Concomitant]
     Route: 048
  7. INVEGA [Concomitant]
     Indication: SCHIZOAFFECTIVE DISORDER
     Dosage: 6MG PER DAY
     Route: 048
     Dates: start: 20130123, end: 20130223

REACTIONS (9)
  - Schizoaffective disorder [Unknown]
  - Acute generalised exanthematous pustulosis [Recovered/Resolved]
  - Rash generalised [Recovered/Resolved]
  - Pruritus [Unknown]
  - Rash papular [Unknown]
  - Rash pustular [Unknown]
  - Pyrexia [Unknown]
  - Drug eruption [Recovered/Resolved]
  - Nasopharyngitis [Unknown]
